FAERS Safety Report 6436300-3 (Version None)
Quarter: 2009Q4

REPORT INFORMATION
  Report Type: 
  Country: None (occurrence: None)
  Receive Date: 20091111
  Receipt Date: 20091102
  Transmission Date: 20100525
  Serious: Yes (Hospitalization)
  Sender: FDA-Public Use
  Company Number: B0539029A

PATIENT
  Sex: Female

DRUGS (8)
  1. PAXIL [Suspect]
     Indication: DEPRESSION
     Dosage: 10MG PER DAY
     Route: 048
     Dates: start: 20080901, end: 20080911
  2. PAXIL [Suspect]
     Dosage: 20MG PER DAY
     Route: 048
     Dates: start: 20080912, end: 20080918
  3. LANSOPRAZOLE [Suspect]
     Indication: ABDOMINAL DISCOMFORT
     Dosage: 30MG PER DAY
     Route: 048
     Dates: start: 20080905, end: 20080922
  4. LENDORMIN [Concomitant]
     Indication: INSOMNIA
     Dosage: .25MG PER DAY
     Route: 048
     Dates: start: 20080816, end: 20080918
  5. MEVALOTIN [Concomitant]
     Dosage: 10MG PER DAY
     Route: 048
     Dates: start: 20080802
  6. BUFFERIN [Concomitant]
     Indication: CEREBRAL INFARCTION
     Dosage: 81MG PER DAY
     Route: 048
     Dates: start: 20080822
  7. PURSENNID [Concomitant]
     Indication: CONSTIPATION
     Dosage: 12MG PER DAY
     Route: 048
     Dates: start: 20080815
  8. DEPAS [Concomitant]
     Indication: INSOMNIA
     Dosage: .5MG PER DAY
     Route: 048
     Dates: start: 20080815, end: 20080918

REACTIONS (7)
  - BLOOD SODIUM INCREASED [None]
  - CONDITION AGGRAVATED [None]
  - DECREASED ACTIVITY [None]
  - DECREASED APPETITE [None]
  - HYPONATRAEMIA [None]
  - INAPPROPRIATE ANTIDIURETIC HORMONE SECRETION [None]
  - MALAISE [None]
